FAERS Safety Report 4489750-9 (Version None)
Quarter: 2004Q4

REPORT INFORMATION
  Report Type: 
  Country: None (occurrence: None)
  Receive Date: 20041101
  Receipt Date: 20030605
  Transmission Date: 20050328
  Serious: Yes (Hospitalization, Other)
  Sender: FDA-Public Use
  Company Number: US-MERCK-0306USA00729

PATIENT
  Age: 60 Year
  Sex: Male
  Weight: 93 kg

DRUGS (6)
  1. VIOXX [Suspect]
     Route: 048
  2. VASOTEC [Concomitant]
     Route: 048
  3. LIPITOR [Concomitant]
     Route: 065
  4. ASPIRIN [Concomitant]
     Route: 065
  5. VERELAN [Concomitant]
     Route: 065
  6. NITROSTAT [Concomitant]
     Indication: CHEST PAIN
     Route: 065

REACTIONS (23)
  - ADVERSE EVENT [None]
  - ANGINA PECTORIS [None]
  - ARTHRALGIA [None]
  - ATRIAL FLUTTER [None]
  - BASAL GANGLION DEGENERATION [None]
  - BLOOD PRESSURE INCREASED [None]
  - CEREBROVASCULAR ACCIDENT [None]
  - CHEST DISCOMFORT [None]
  - CONVULSION [None]
  - CORONARY ARTERY ATHEROSCLEROSIS [None]
  - DYSPEPSIA [None]
  - DYSPNOEA [None]
  - EAR DISORDER [None]
  - FALL [None]
  - HEADACHE [None]
  - HIATUS HERNIA [None]
  - HYPOAESTHESIA [None]
  - NON-CARDIAC CHEST PAIN [None]
  - PAIN IN EXTREMITY [None]
  - PARAESTHESIA [None]
  - RENAL IMPAIRMENT [None]
  - VENTRICULAR DYSFUNCTION [None]
  - VERTIGO [None]
